FAERS Safety Report 4405969-7 (Version None)
Quarter: 2004Q3

REPORT INFORMATION
  Report Type: 
  Country: None (occurrence: None)
  Receive Date: 20040723
  Receipt Date: 20040223
  Transmission Date: 20050211
  Serious: No
  Sender: FDA-Public Use
  Company Number: US-GLAXOSMITHKLINE-A0499449A

PATIENT
  Age: 58 Year
  Sex: Female

DRUGS (7)
  1. AVANDIA [Suspect]
     Dosage: 4MG PER DAY
     Route: 048
     Dates: start: 20030301, end: 20030601
  2. INSULIN [Concomitant]
  3. ALTACE [Concomitant]
  4. LEVOXYL [Concomitant]
  5. LASIX [Concomitant]
  6. POTASSIUM [Concomitant]
  7. HYDROCODONE [Concomitant]

REACTIONS (2)
  - DIARRHOEA [None]
  - NAUSEA [None]
